FAERS Safety Report 5485438-6 (Version None)
Quarter: 2007Q4

REPORT INFORMATION
  Report Type: 
  Country: None (occurrence: None)
  Receive Date: 20071011
  Receipt Date: 20070928
  Transmission Date: 20080405
  Serious: No
  Sender: FDA-Public Use
  Company Number: 2007-165069-NL

PATIENT
  Sex: Male

DRUGS (1)
  1. MIRTAZAPINE [Suspect]
     Dosage: DF;

REACTIONS (17)
  - AMNESIA [None]
  - CONDITION AGGRAVATED [None]
  - CONVULSION [None]
  - FOOD ALLERGY [None]
  - HEPATOCELLULAR DAMAGE [None]
  - IMMUNE SYSTEM DISORDER [None]
  - MALNUTRITION [None]
  - MENTAL DISORDER [None]
  - MIGRAINE [None]
  - MILK ALLERGY [None]
  - NAUSEA [None]
  - PRURITUS GENERALISED [None]
  - RENAL DISORDER [None]
  - SKIN HAEMORRHAGE [None]
  - SLEEP DISORDER [None]
  - TREATMENT NONCOMPLIANCE [None]
  - VISUAL DISTURBANCE [None]
